FAERS Safety Report 23632340 (Version 3)
Quarter: 2024Q1

REPORT INFORMATION
  Report Type: Spontaneous
  Country: US (occurrence: US)
  Receive Date: 20240314
  Receipt Date: 20240326
  Transmission Date: 20240410
  Serious: No
  Sender: FDA-Public Use
  Company Number: US-SANOFI-01973662

PATIENT
  Age: 57 Year
  Sex: Male

DRUGS (1)
  1. LANTUS SOLOSTAR [Suspect]
     Active Substance: INSULIN GLARGINE
     Indication: Diabetes mellitus
     Dosage: 14 IU, BID

REACTIONS (4)
  - Inappropriate schedule of product administration [Unknown]
  - Blood glucose increased [Unknown]
  - Product dose omission issue [Unknown]
  - Device issue [Unknown]
